FAERS Safety Report 9147721 (Version 2)
Quarter: 2013Q1

REPORT INFORMATION
  Report Type: Spontaneous
  Country: DE (occurrence: DE)
  Receive Date: 20130307
  Receipt Date: 20130312
  Transmission Date: 20140127
  Serious: Yes (Life-Threatening, Hospitalization)
  Sender: FDA-Public Use
  Company Number: DE-PFIZER INC-2013074135

PATIENT
  Age: 21 Year
  Sex: Female

DRUGS (2)
  1. IBUPROFEN [Suspect]
     Indication: BACK PAIN
     Dosage: 400 - 800 MG/D, AS NEEDED
     Route: 048
     Dates: start: 2009, end: 20120911
  2. NOVAMINOSULFON [Suspect]
     Indication: HEADACHE
     Dosage: 525 - 650 MG/D, AS NEEDED
     Route: 048
     Dates: start: 2009, end: 20120910

REACTIONS (1)
  - Agranulocytosis [Recovered/Resolved]
